FAERS Safety Report 6596793-8 (Version None)
Quarter: 2010Q1

REPORT INFORMATION
  Report Type: 
  Country: None (occurrence: None)
  Receive Date: 20100222
  Receipt Date: 20100222
  Transmission Date: 20100710
  Serious: Yes (Other)
  Sender: FDA-Public Use
  Company Number: None

PATIENT

DRUGS (3)
  1. SEROQUEL XR [Suspect]
     Indication: MIGRAINE PROPHYLAXIS
     Dosage: 1 1
     Dates: start: 20091201
  2. SEROQUEL XR [Suspect]
     Indication: MIGRAINE PROPHYLAXIS
     Dosage: 1 1
     Dates: start: 20100202
  3. A LOT! [Concomitant]

REACTIONS (16)
  - DISORIENTATION [None]
  - DISTURBANCE IN ATTENTION [None]
  - DIZZINESS [None]
  - DRY MOUTH [None]
  - HEADACHE [None]
  - HYPERHIDROSIS [None]
  - MUSCLE SPASMS [None]
  - MUSCULOSKELETAL PAIN [None]
  - MYALGIA [None]
  - NAIL INFECTION [None]
  - NASAL CONGESTION [None]
  - NECK PAIN [None]
  - POLLAKIURIA [None]
  - POLYDIPSIA [None]
  - TINNITUS [None]
  - VISUAL IMPAIRMENT [None]
